FAERS Safety Report 9169000 (Version 1)
Quarter: 2013Q1

REPORT INFORMATION
  Report Type: Spontaneous
  Country: US (occurrence: None)
  Receive Date: 20130314
  Receipt Date: 20130314
  Transmission Date: 20140127
  Serious: Yes (Hospitalization)
  Sender: FDA-Public Use
  Company Number: None

PATIENT
  Age: 63 Year
  Sex: Male
  Weight: 114.1 kg

DRUGS (1)
  1. SITAGLIPTIN [Suspect]
     Dosage: 100 MG EVERY DAY PO
     Route: 048
     Dates: start: 20120319, end: 20121018

REACTIONS (4)
  - Abdominal pain [None]
  - Cholelithiasis [None]
  - Hepatitis [None]
  - Pancreatitis [None]
